FAERS Safety Report 23180351 (Version 2)
Quarter: 2023Q4

REPORT INFORMATION
  Report Type: Spontaneous
  Country: TN (occurrence: TN)
  Receive Date: 20231114
  Receipt Date: 20231123
  Transmission Date: 20240110
  Serious: Yes (Other)
  Sender: FDA-Public Use
  Company Number: FR-UCBSA-2023053959

PATIENT
  Age: 40 Year
  Sex: Male
  Weight: 75 kg

DRUGS (1)
  1. CERTOLIZUMAB PEGOL [Suspect]
     Active Substance: CERTOLIZUMAB PEGOL
     Indication: Ankylosing spondylitis
     Dosage: 400 MILLIGRAM, MONTHLY (QM)
     Dates: start: 202112, end: 20230915

REACTIONS (1)
  - Peritoneal tuberculosis [Not Recovered/Not Resolved]

NARRATIVE: CASE EVENT DATE: 20231001
